FAERS Safety Report 6759877-7 (Version None)
Quarter: 2010Q2

REPORT INFORMATION
  Report Type: 
  Country: None (occurrence: None)
  Receive Date: 20100604
  Receipt Date: 20100525
  Transmission Date: 20101027
  Serious: Yes (Other)
  Sender: FDA-Public Use
  Company Number: 2010-1836

PATIENT
  Age: 41 Year
  Sex: Female
  Weight: 60 kg

DRUGS (2)
  1. DYSPORT [Suspect]
     Indication: SKIN WRINKLING
     Dosage: 38 UNITS (38 UNITS, SINGLE CYCLE), INTRADERMAL
     Route: 023
     Dates: start: 20090915, end: 20090915
  2. BOTULINUM TOXIN TYPE A [Suspect]

REACTIONS (3)
  - DYSPHAGIA [None]
  - DYSPNOEA [None]
  - PRODUCT RECONSTITUTION ISSUE [None]
